FAERS Safety Report 19678812 (Version 1)
Quarter: 2021Q3

REPORT INFORMATION
  Report Type: Spontaneous
  Country: US (occurrence: US)
  Receive Date: 20210809
  Receipt Date: 20210809
  Transmission Date: 20211014
  Serious: Yes (Hospitalization)
  Sender: FDA-Public Use
  Company Number: None

PATIENT
  Age: 72 Year
  Sex: Male
  Weight: 66 kg

DRUGS (7)
  1. ATORVASTATIN [Concomitant]
     Active Substance: ATORVASTATIN
  2. EMPAGLIFLOZIN AND LINAGLIPTIN [Suspect]
     Active Substance: EMPAGLIFLOZIN\LINAGLIPTIN
     Indication: TYPE 2 DIABETES MELLITUS
     Route: 048
  3. ASPIRIN. [Concomitant]
     Active Substance: ASPIRIN
  4. CLOTRIMAZOLE?BETAMETHASONE TOPICAL [Concomitant]
  5. SILVER SULFADIAZINE TOPICAL [Concomitant]
  6. METFORMIN [Concomitant]
     Active Substance: METFORMIN HYDROCHLORIDE
  7. TESTOSTERONE IM [Concomitant]

REACTIONS (3)
  - Abnormal loss of weight [None]
  - Diabetic ketoacidosis [None]
  - Pancreatitis [None]

NARRATIVE: CASE EVENT DATE: 20210707
